FAERS Safety Report 18670054 (Version 1)
Quarter: 2020Q4

REPORT INFORMATION
  Report Type: Spontaneous
  Country: CH (occurrence: CH)
  Receive Date: 20201228
  Receipt Date: 20201228
  Transmission Date: 20210114
  Serious: No
  Sender: FDA-Public Use
  Company Number: CH-PFIZER INC-2020484497

PATIENT
  Age: 30 Year
  Sex: Female
  Weight: 76 kg

DRUGS (1)
  1. SAYANA [Suspect]
     Active Substance: MEDROXYPROGESTERONE
     Indication: CONTRACEPTION
     Dosage: 104 UNK, EVERY 3 MONTHS (1X/3MONTHS)
     Dates: start: 20200925

REACTIONS (2)
  - Drug dose omission by device [Unknown]
  - Device delivery system issue [Unknown]

NARRATIVE: CASE EVENT DATE: 20200925
